FAERS Safety Report 8882309 (Version 3)
Quarter: 2012Q4

REPORT INFORMATION
  Report Type: 
  Country: US (occurrence: US)
  Receive Date: 20121102
  Receipt Date: 20121123
  Transmission Date: 20130627
  Serious: Yes (Death, Other)
  Sender: FDA-Public Use
  Company Number: US-009507513-1210USA013261

PATIENT
  Sex: Male

DRUGS (1)
  1. ISENTRESS [Suspect]
     Dosage: 400 mg, bid
     Route: 048
     Dates: end: 20121021

REACTIONS (1)
  - Hepatic cancer [Fatal]
